FAERS Safety Report 18862456 (Version 1)
Quarter: 2021Q1

REPORT INFORMATION
  Report Type: Spontaneous
  Country: BR (occurrence: BR)
  Receive Date: 20210208
  Receipt Date: 20210208
  Transmission Date: 20210420
  Serious: Yes (Death)
  Sender: FDA-Public Use
  Company Number: BR-BAYER-2021-058053

PATIENT

DRUGS (2)
  1. FLANAX 24H [NAPROXEN SODIUM] [Suspect]
     Active Substance: NAPROXEN SODIUM
  2. ETANERCEPT [Suspect]
     Active Substance: ETANERCEPT

REACTIONS (1)
  - Haematemesis [Fatal]
